FAERS Safety Report 7619339-1 (Version None)
Quarter: 2011Q3

REPORT INFORMATION
  Report Type: 
  Country: None (occurrence: None)
  Receive Date: 20110719
  Receipt Date: 20110705
  Transmission Date: 20111222
  Serious: Yes (Death, Hospitalization, Other)
  Sender: FDA-Public Use
  Company Number: DE-PAR PHARMACEUTICAL, INC-2011SCPR003100

PATIENT
  Age: 7 Month
  Sex: Male

DRUGS (5)
  1. FUROSEMIDE [Concomitant]
     Indication: DRUG THERAPY
     Dosage: UNK, UNKNOWN
     Route: 065
  2. PROPRANOLOL HYDROCHLORIDE [Suspect]
     Indication: CARDIAC FAILURE
     Dosage: 0.3 MG/KG/DAY (0.1 MG/KG PER DOSE)
     Route: 065
  3. SPIRONOLACTONE [Concomitant]
     Indication: DRUG THERAPY
     Dosage: UNK, UNKNOWN
     Route: 065
  4. DIGOXIN [Concomitant]
     Indication: DRUG THERAPY
     Dosage: UNK, UNKNOWN
     Route: 065
  5. CAPTOPRIL [Concomitant]
     Indication: DRUG THERAPY
     Dosage: UNK, UNKNOWN
     Route: 065

REACTIONS (7)
  - DEATH [None]
  - SYSTEMIC INFLAMMATORY RESPONSE SYNDROME [None]
  - HEPATIC FAILURE [None]
  - PULMONARY HYPERTENSIVE CRISIS [None]
  - PULMONARY OEDEMA [None]
  - HISTIOCYTOSIS HAEMATOPHAGIC [None]
  - RESPIRATORY FAILURE [None]
